APPROVED DRUG PRODUCT: FLUDROCORTISONE ACETATE
Active Ingredient: FLUDROCORTISONE ACETATE
Strength: 0.1MG
Dosage Form/Route: TABLET;ORAL
Application: A040431 | Product #001 | TE Code: AB
Applicant: IMPAX LABORATORIES INC
Approved: Mar 18, 2002 | RLD: No | RS: Yes | Type: RX